FAERS Safety Report 13357764 (Version 1)
Quarter: 2017Q1

REPORT INFORMATION
  Report Type: Spontaneous
  Country: GB (occurrence: GB)
  Receive Date: 20170322
  Receipt Date: 20170322
  Transmission Date: 20170429
  Serious: Yes (Death, Life-Threatening, Hospitalization)
  Sender: FDA-Public Use
  Company Number: GB-009507513-1703GBR009615

PATIENT
  Age: 77 Year
  Sex: Female

DRUGS (21)
  1. DEXAMETHASONE. [Suspect]
     Active Substance: DEXAMETHASONE
     Indication: PLASMA CELL MYELOMA
     Dosage: AT CYCLE 1 DAY 1, 20 MG, QD
     Route: 048
     Dates: start: 20161210, end: 20161210
  2. DEXAMETHASONE. [Suspect]
     Active Substance: DEXAMETHASONE
     Dosage: AT CYCLE 2 DAY 1, 20 MG, QD
     Route: 048
     Dates: start: 20170107, end: 20170107
  3. DALTEPARIN SODIUM [Concomitant]
     Active Substance: DALTEPARIN SODIUM
     Indication: ANTICOAGULANT THERAPY
     Dosage: 5000 IU, QD
     Route: 058
     Dates: start: 20161209
  4. DEXAMETHASONE. [Suspect]
     Active Substance: DEXAMETHASONE
     Dosage: AT CYCLE 1 DAY 22, 20 MG, QD
     Route: 048
     Dates: start: 20161231, end: 20161231
  5. DEXAMETHASONE. [Suspect]
     Active Substance: DEXAMETHASONE
     Dosage: AT CYCLE 2 DAY 8, 20 MG, QD
     Route: 048
     Dates: start: 20170114, end: 20170114
  6. REVLIMID [Suspect]
     Active Substance: LENALIDOMIDE
     Indication: PLASMA CELL MYELOMA
     Dosage: AT CYCLE 1 PERIOD 1, 25 MG, QD
     Route: 048
     Dates: start: 20161210
  7. DOXAZOSIN [Concomitant]
     Active Substance: DOXAZOSIN\DOXAZOSIN MESYLATE
     Indication: HYPERTENSION
     Dosage: 2 MG, QD
     Route: 048
     Dates: start: 201611
  8. REVLIMID [Suspect]
     Active Substance: LENALIDOMIDE
     Dosage: AT CYCLE 2 PERIOD 1, 20 MG, QD
     Route: 048
     Dates: start: 20170107, end: 20170123
  9. LISINOPRIL. [Concomitant]
     Active Substance: LISINOPRIL
     Indication: HYPERTENSION
     Dosage: 20 MG, QD
     Route: 048
  10. PROPRANOLOL [Concomitant]
     Active Substance: PROPRANOLOL HYDROCHLORIDE
     Indication: HYPERTENSION
     Dosage: 10 MG, BID
     Route: 048
  11. DEXAMETHASONE. [Suspect]
     Active Substance: DEXAMETHASONE
     Dosage: AT CYCLE 1 DAY 8, 20 MG, QD
     Route: 048
     Dates: start: 20161217, end: 20161217
  12. FLUCONAZOLE. [Concomitant]
     Active Substance: FLUCONAZOLE
     Indication: ANTIVIRAL PROPHYLAXIS
     Dosage: 50 MG, QD
     Route: 048
     Dates: start: 20161209
  13. FUSIDIC ACID [Concomitant]
     Active Substance: FUSIDIC ACID
     Indication: SKIN LESION
     Dosage: FORMULATION: POULTICE, TID
     Route: 061
     Dates: start: 20061205
  14. DEXAMETHASONE. [Suspect]
     Active Substance: DEXAMETHASONE
     Dosage: AT CYCLE 1 DAY 15, 20 MG, QD
     Route: 048
     Dates: start: 20161224, end: 20161224
  15. ALLOPURINOL. [Concomitant]
     Active Substance: ALLOPURINOL
     Indication: RENAL APLASIA
     Dosage: 300 MG, QD
     Route: 048
  16. DEXAMETHASONE. [Suspect]
     Active Substance: DEXAMETHASONE
     Dosage: AT CYCLE 2 DAY 22, 20 MG, QD
     Route: 048
     Dates: start: 20170124, end: 20170124
  17. ACYCLOVIR. [Concomitant]
     Active Substance: ACYCLOVIR
     Indication: ANTIVIRAL PROPHYLAXIS
     Dosage: 400 MG, BID
     Route: 048
     Dates: start: 20161209
  18. DEXAMETHASONE. [Suspect]
     Active Substance: DEXAMETHASONE
     Dosage: AT CYCLE 2 DAY 15, 20 MG, QD
     Route: 048
     Dates: start: 20170121, end: 20170121
  19. GAVISCON ADVANCE [Concomitant]
     Active Substance: POTASSIUM BICARBONATE\SODIUM ALGINATE
     Indication: GASTRITIS
     Dosage: 10 ML, TID
     Route: 048
     Dates: start: 20161205
  20. SULFAMETHOXAZOLE (+) TRIMETHOPRIM [Concomitant]
     Active Substance: SULFAMETHOXAZOLE\TRIMETHOPRIM
     Indication: ANTIBIOTIC PROPHYLAXIS
     Dosage: 180 MG, QD
     Route: 048
     Dates: start: 20161209
  21. OMEPRAZOLE. [Concomitant]
     Active Substance: OMEPRAZOLE
     Indication: PROPHYLAXIS
     Dosage: 20 MG, QD
     Route: 048

REACTIONS (1)
  - Hepatic failure [Fatal]

NARRATIVE: CASE EVENT DATE: 20170124
